FAERS Safety Report 11655063 (Version 1)
Quarter: 2015Q4

REPORT INFORMATION
  Report Type: Other
  Country: TR (occurrence: TR)
  Receive Date: 20151023
  Receipt Date: 20151023
  Transmission Date: 20160304
  Serious: Yes (Other)
  Sender: FDA-Public Use
  Company Number: TR-LUPIN PHARMACEUTICALS INC.-2015-03272

PATIENT
  Age: 8 Month
  Sex: Male

DRUGS (3)
  1. CEFOTAXIME [Suspect]
     Active Substance: CEFOTAXIME SODIUM
     Indication: PYELONEPHRITIS
     Dosage: 150 MG/KG
     Route: 042
  2. CEFIXIME. [Suspect]
     Active Substance: CEFIXIME
     Indication: PYELONEPHRITIS
     Dosage: 3 MG/KG
     Route: 048
  3. CEFTRIAXONE. [Suspect]
     Active Substance: CEFTRIAXONE
     Indication: PYELONEPHRITIS
     Dosage: 500 MG
     Route: 030

REACTIONS (1)
  - Haemolytic anaemia [Recovered/Resolved]
